FAERS Safety Report 15496074 (Version 2)
Quarter: 2018Q4

REPORT INFORMATION
  Report Type: Spontaneous
  Country: US (occurrence: US)
  Receive Date: 20181012
  Receipt Date: 20181116
  Transmission Date: 20190205
  Serious: Yes (Other)
  Sender: FDA-Public Use
  Company Number: US-TEVA-2018-US-961672

PATIENT
  Age: 74 Year
  Sex: Female
  Weight: 85.35 kg

DRUGS (8)
  1. LIPITOR [Concomitant]
     Active Substance: ATORVASTATIN CALCIUM
     Dosage: 1 DOSAGE FORMS DAILY; 1 DF= 1 TAB
  2. LETROZOLE. [Suspect]
     Active Substance: LETROZOLE
     Dosage: 1 DOSAGE FORMS DAILY; 1 TAB NIGHTLY
     Route: 065
     Dates: start: 201712
  3. VITAMIN D [Concomitant]
     Active Substance: CHOLECALCIFEROL
     Dosage: 2 DOSAGE FORMS DAILY; 2 TAB DAILY
  4. LUMIGAN [Concomitant]
     Active Substance: BIMATOPROST
     Dosage: 1 DROP EACH EYE NIGHTLY
     Route: 047
  5. MAXZIDE [Concomitant]
     Active Substance: HYDROCHLOROTHIAZIDE\TRIAMTERENE
     Dosage: 1 DOSAGE FORMS DAILY; 1 DF=1TAB
  6. CALTRATE [Concomitant]
     Active Substance: CALCIUM CARBONATE
  7. FISH OIL [Concomitant]
     Active Substance: FISH OIL
     Dosage: 2 DOSAGE FORMS DAILY;
  8. RESTASIS [Concomitant]
     Active Substance: CYCLOSPORINE
     Dosage: 1 DROP IN EACH EYE 2 TIMES A DAY
     Route: 047

REACTIONS (5)
  - Hypoaesthesia [Not Recovered/Not Resolved]
  - Pain in extremity [Unknown]
  - Paraesthesia [Not Recovered/Not Resolved]
  - Carpal tunnel syndrome [Not Recovered/Not Resolved]
  - Fine motor skill dysfunction [Unknown]

NARRATIVE: CASE EVENT DATE: 201803
